FAERS Safety Report 18767814 (Version 1)
Quarter: 2021Q1

REPORT INFORMATION
  Report Type: Spontaneous
  Country: US (occurrence: US)
  Receive Date: 20210120
  Receipt Date: 20210120
  Transmission Date: 20210419
  Serious: Yes (Hospitalization)
  Sender: FDA-Public Use
  Company Number: None

PATIENT
  Age: 55 Year
  Sex: Female

DRUGS (1)
  1. ENBREL [Suspect]
     Active Substance: ETANERCEPT
     Indication: SPINAL OSTEOARTHRITIS
     Route: 058
     Dates: start: 20190321

REACTIONS (2)
  - Intestinal obstruction [None]
  - Product dose omission issue [None]

NARRATIVE: CASE EVENT DATE: 20210110
